FAERS Safety Report 11596820 (Version 3)
Quarter: 2016Q1

REPORT INFORMATION
  Report Type: Report from Study
  Country: US (occurrence: US)
  Receive Date: 20151006
  Receipt Date: 20160302
  Transmission Date: 20160525
  Serious: Yes (Other)
  Sender: FDA-Public Use
  Company Number: US-MALLINCKRODT-T201503590

PATIENT
  Age: 44 Year
  Sex: Female
  Weight: 104 kg

DRUGS (6)
  1. REPOSITORY CORTICOTROPIN INJECTION [Suspect]
     Active Substance: CORTICOTROPIN
     Indication: SYSTEMIC LUPUS ERYTHEMATOSUS
     Dosage: 80 UNITS TWICE WKLY
     Route: 058
     Dates: start: 201507
  2. REPOSITORY CORTICOTROPIN INJECTION [Suspect]
     Active Substance: CORTICOTROPIN
     Dosage: 40 UNITS TWICE WKLY
     Route: 058
     Dates: start: 201511
  3. PREDNISONE. [Suspect]
     Active Substance: PREDNISONE
     Dosage: UNK
  4. REPOSITORY CORTICOTROPIN INJECTION [Suspect]
     Active Substance: CORTICOTROPIN
     Dosage: 80 UNITS TWICE WKLY
     Route: 058
     Dates: start: 20140630, end: 201511
  5. METHOTREXATE [Concomitant]
     Active Substance: METHOTREXATE
  6. CELLCEPT [Concomitant]
     Active Substance: MYCOPHENOLATE MOFETIL\MYCOPHENOLATE MOFETIL HYDROCHLORIDE

REACTIONS (9)
  - Injection site bruising [Not Recovered/Not Resolved]
  - Adrenal disorder [Not Recovered/Not Resolved]
  - Diabetes mellitus [Not Recovered/Not Resolved]
  - Fatigue [Not Recovered/Not Resolved]
  - Lipoma [Not Recovered/Not Resolved]
  - Injection site scar [Unknown]
  - Injection site discolouration [Not Recovered/Not Resolved]
  - Cataract [Not Recovered/Not Resolved]
  - Compression fracture [Not Recovered/Not Resolved]

NARRATIVE: CASE EVENT DATE: 201508
